FAERS Safety Report 24222714 (Version 1)
Quarter: 2024Q3

REPORT INFORMATION
  Report Type: Spontaneous
  Country: IL (occurrence: IL)
  Receive Date: 20240819
  Receipt Date: 20240819
  Transmission Date: 20241016
  Serious: Yes (Hospitalization)
  Sender: ROCHE
  Company Number: IL-002147023-NVSC2024IL164311

PATIENT
  Sex: Female

DRUGS (2)
  1. XOLAIR [Suspect]
     Active Substance: OMALIZUMAB
     Indication: Chronic spontaneous urticaria
     Dosage: 300 MG (EVERY 2 -4 WEEKS)
     Route: 050
     Dates: start: 202407
  2. XOLAIR [Suspect]
     Active Substance: OMALIZUMAB
     Dosage: UNK (INTERVAL WAS DECREASED TO 3 WEEKS)
     Route: 065

REACTIONS (3)
  - Chronic spontaneous urticaria [Recovering/Resolving]
  - Angioedema [Recovering/Resolving]
  - Off label use [Unknown]
